FAERS Safety Report 8100876-0 (Version None)
Quarter: 2012Q1

REPORT INFORMATION
  Report Type: 
  Country: None (occurrence: None)
  Receive Date: 20120129
  Receipt Date: 20110909
  Transmission Date: 20120608
  Serious: No
  Sender: FDA-Public Use
  Company Number: US-ABBOTT-11P-163-0852941-00

PATIENT
  Sex: Female

DRUGS (5)
  1. ZOCOR [Concomitant]
     Indication: PRODUCT USED FOR UNKNOWN INDICATION
     Route: 048
  2. HUMIRA [Suspect]
     Indication: CROHN'S DISEASE
     Dosage: 160 MG DAY 1
     Route: 058
     Dates: start: 20110815, end: 20110815
  3. HUMIRA [Suspect]
     Dosage: 80 MG DAY 15
     Route: 058
     Dates: start: 20110901, end: 20110901
  4. HUMIRA [Suspect]
     Route: 058
  5. COLAZOL [Concomitant]
     Indication: PRODUCT USED FOR UNKNOWN INDICATION
     Route: 048

REACTIONS (4)
  - INFLUENZA LIKE ILLNESS [None]
  - PYREXIA [None]
  - DYSPEPSIA [None]
  - COLD SWEAT [None]
